FAERS Safety Report 18974051 (Version 1)
Quarter: 2021Q1

REPORT INFORMATION
  Report Type: Spontaneous
  Country: US (occurrence: US)
  Receive Date: 20210305
  Receipt Date: 20210305
  Transmission Date: 20210420
  Serious: No
  Sender: FDA-Public Use
  Company Number: US-TEVA-2021-US-1882945

PATIENT
  Sex: Female

DRUGS (1)
  1. AUSTEDO [Suspect]
     Active Substance: DEUTETRABENAZINE
     Indication: PRODUCT USED FOR UNKNOWN INDICATION
     Dosage: 12 MILLIGRAM DAILY;
     Route: 048

REACTIONS (6)
  - Hypoacusis [Unknown]
  - Ear pain [Unknown]
  - Depression [Unknown]
  - Trismus [Unknown]
  - Speech disorder [Unknown]
  - Drug ineffective [Unknown]
